FAERS Safety Report 17115172 (Version 1)
Quarter: 2019Q4

REPORT INFORMATION
  Report Type: Spontaneous
  Country: US (occurrence: US)
  Receive Date: 20191205
  Receipt Date: 20191205
  Transmission Date: 20200122
  Serious: No
  Sender: FDA-Public Use
  Company Number: US-GW PHARMA-201910USGW3859

PATIENT

DRUGS (4)
  1. ONFI [Interacting]
     Active Substance: CLOBAZAM
     Dosage: 20 MILLIGRAM, QD (QPM)
     Route: 065
     Dates: start: 20191009, end: 20191021
  2. EPIDIOLEX [Suspect]
     Active Substance: CANNABIDIOL
     Indication: EPILEPSY
     Dosage: 200 MILLIGRAM, BID
     Route: 048
     Dates: start: 20190926
  3. ONFI [Interacting]
     Active Substance: CLOBAZAM
     Indication: PRODUCT USED FOR UNKNOWN INDICATION
     Dosage: 25 MILLIGRAM, QD (QPM)
     Route: 065
     Dates: start: 200905, end: 20191008
  4. ONFI [Interacting]
     Active Substance: CLOBAZAM
     Dosage: 17.5 MILLIGRAM, QD (QPM)
     Route: 065
     Dates: start: 20191022

REACTIONS (3)
  - Fatigue [Unknown]
  - Drug interaction [Unknown]
  - Somnolence [Recovering/Resolving]

NARRATIVE: CASE EVENT DATE: 201910
